FAERS Safety Report 26043378 (Version 3)
Quarter: 2025Q4

REPORT INFORMATION
  Report Type: Spontaneous
  Country: JP (occurrence: JP)
  Receive Date: 20251113
  Receipt Date: 20251212
  Transmission Date: 20260118
  Serious: Yes (Other)
  Sender: MERCK SHARP & DOHME LLC
  Company Number: JP-009507513-2348496

PATIENT
  Sex: Female

DRUGS (3)
  1. KEYTRUDA [Suspect]
     Active Substance: PEMBROLIZUMAB
     Indication: Triple negative breast cancer
     Dosage: 4 COURSES
     Route: 041
     Dates: end: 20251107
  2. PACLITAXEL [Suspect]
     Active Substance: PACLITAXEL
     Indication: Triple negative breast cancer
     Dosage: 4 COURSES
     Route: 041
  3. CARBOPLATIN [Suspect]
     Active Substance: CARBOPLATIN
     Indication: Triple negative breast cancer
     Dosage: 4 COURSES
     Route: 041

REACTIONS (5)
  - Immune-mediated cystitis [Recovering/Resolving]
  - White blood cells urine positive [Recovering/Resolving]
  - Haematuria [Recovering/Resolving]
  - Protein urine present [Recovering/Resolving]
  - Urinary occult blood positive [Recovering/Resolving]

NARRATIVE: CASE EVENT DATE: 20250101
